FAERS Safety Report 17016984 (Version 1)
Quarter: 2019Q4

REPORT INFORMATION
  Report Type: Spontaneous
  Country: US (occurrence: US)
  Receive Date: 20191111
  Receipt Date: 20191111
  Transmission Date: 20200122
  Serious: No
  Sender: FDA-Public Use
  Company Number: US-PUMA BIOTECHNOLOGY, LTD.-2019US008346

PATIENT

DRUGS (2)
  1. NERLYNX [Suspect]
     Active Substance: NERATINIB
     Indication: PRODUCT USED FOR UNKNOWN INDICATION
     Dosage: UNK UNK, DAILY
     Route: 048
     Dates: start: 201907, end: 2019
  2. NERLYNX [Suspect]
     Active Substance: NERATINIB
     Dosage: 4 TABLETS, DAILY
     Route: 048
     Dates: start: 2019

REACTIONS (3)
  - Temporomandibular joint syndrome [Unknown]
  - Arthralgia [Unknown]
  - Neuropathy peripheral [Unknown]

NARRATIVE: CASE EVENT DATE: 2019
